FAERS Safety Report 6904341-5 (Version None)
Quarter: 2010Q3

REPORT INFORMATION
  Report Type: 
  Country: None (occurrence: None)
  Receive Date: 20100804
  Receipt Date: 20090429
  Transmission Date: 20110219
  Serious: No
  Sender: FDA-Public Use
  Company Number: US-PFIZER INC-2009206541

PATIENT
  Sex: Female
  Weight: 72.574 kg

DRUGS (3)
  1. LYRICA [Suspect]
     Indication: PAIN
     Dosage: 75 MG, 2X/DAY
     Dates: start: 20090428
  2. DOXEPIN [Concomitant]
     Indication: SLEEP DISORDER
  3. PREDNISONE TAB [Concomitant]

REACTIONS (2)
  - DIZZINESS [None]
  - VOMITING [None]
